FAERS Safety Report 8949832 (Version 2)
Quarter: 2013Q1

REPORT INFORMATION
  Report Type: Report from Study
  Country: US (occurrence: US)
  Receive Date: 20121206
  Receipt Date: 20130204
  Transmission Date: 20140127
  Serious: Yes (Death, Other)
  Sender: FDA-Public Use
  Company Number: US-JNJFOC-20121103744

PATIENT
  Age: 69 Year
  Sex: Male
  Weight: 123.15 kg

DRUGS (19)
  1. ZYTIGA [Suspect]
     Indication: PROSTATE CANCER
     Route: 048
     Dates: start: 20110916, end: 20120224
  2. CALCIUM MAGNESIUM ZINC [Concomitant]
     Route: 065
  3. GLYBURIDE [Concomitant]
     Indication: DIABETES MELLITUS
     Route: 065
  4. JANUVIA [Concomitant]
     Indication: DIABETES MELLITUS
     Route: 065
  5. LASIX [Concomitant]
     Indication: OEDEMA
     Dosage: 20MG, 1-5 TABLETS DAILY
     Route: 065
  6. HUMALOG [Concomitant]
     Indication: DIABETES MELLITUS
     Route: 065
  7. LANTUS INSULIN [Concomitant]
     Indication: DIABETES MELLITUS
     Route: 065
  8. KLOR  CON [Concomitant]
     Indication: HYPOKALAEMIA
     Route: 065
  9. NORVASC [Concomitant]
     Indication: HYPERTENSION
     Route: 065
  10. COMPAZINE [Concomitant]
     Indication: NAUSEA
     Route: 065
  11. VICODIN [Concomitant]
     Indication: PAIN
     Dosage: 5/500
     Route: 065
  12. COLACE [Concomitant]
     Indication: CONSTIPATION
     Route: 065
  13. LUPRON [Concomitant]
     Indication: PROSTATE CANCER
     Dosage: RECEIVED ^SHOTS^ FOR 4-6 WEEKS
     Route: 065
  14. XGEVA [Concomitant]
     Indication: METASTASES TO BONE
     Dosage: RECEIVED ^SHOTS^ FOR 4-6 WEEKS
     Route: 065
  15. IBUPROFEN [Concomitant]
     Indication: PAIN
     Route: 065
  16. VITAMIN D [Concomitant]
     Route: 065
  17. FISH OIL [Concomitant]
     Route: 065
  18. ASA [Concomitant]
     Route: 065
  19. MULTIVITAMINS [Concomitant]
     Route: 065

REACTIONS (3)
  - Dyspnoea [Fatal]
  - Fatigue [Fatal]
  - Disease progression [Fatal]
